FAERS Safety Report 10020140 (Version 2)
Quarter: 2015Q1

REPORT INFORMATION
  Report Type: Spontaneous
  Country: SE (occurrence: SE)
  Receive Date: 20140319
  Receipt Date: 20150323
  Transmission Date: 20150720
  Serious: Yes (Hospitalization)
  Sender: FDA-Public Use
  Company Number: SE-JNJFOC-20140306954

PATIENT
  Age: 59 Year
  Sex: Female

DRUGS (4)
  1. PANODIL [Suspect]
     Active Substance: ACETAMINOPHEN
     Indication: TOOTHACHE
     Route: 065
     Dates: start: 20131126, end: 20131129
  2. IPREN [Suspect]
     Active Substance: IBUPROFEN
     Indication: TOOTHACHE
     Route: 065
     Dates: start: 20131126, end: 20131129
  3. PANODIL [Suspect]
     Active Substance: ACETAMINOPHEN
     Indication: TOOTHACHE
     Dosage: 500MG TABLET
     Route: 065
     Dates: start: 20131116, end: 20131117
  4. IPREN [Suspect]
     Active Substance: IBUPROFEN
     Indication: TOOTHACHE
     Route: 065
     Dates: start: 20131116, end: 20131117

REACTIONS (4)
  - Hypoaesthesia oral [Recovered/Resolved]
  - Erythema [Recovered/Resolved]
  - Paraesthesia oral [Recovered/Resolved]
  - Dysphagia [Recovered/Resolved]

NARRATIVE: CASE EVENT DATE: 20131129
